FAERS Safety Report 5636157-4 (Version None)
Quarter: 2008Q1

REPORT INFORMATION
  Report Type: 
  Country: None (occurrence: None)
  Receive Date: 20080225
  Receipt Date: 20080211
  Transmission Date: 20080703
  Serious: Yes (Hospitalization)
  Sender: FDA-Public Use
  Company Number: JP-RANBAXY-2008RR-13035

PATIENT

DRUGS (4)
  1. MINOCYCLINE RPG 100MG COMPRIME PELLICULE [Suspect]
     Indication: URINARY TRACT INFECTION
     Dosage: 200 MG, QD
  2. CEFOTIAM HYDROCHLORIDE [Concomitant]
  3. MINOCYCLINE RPG 100MG COMPRIME PELLICULE [Concomitant]
     Indication: TESTES EXPLORATION
     Dosage: 10 MG, UNK
  4. MINOCYCLINE RPG 100MG COMPRIME PELLICULE [Concomitant]
     Dosage: 100 MG, UNK

REACTIONS (1)
  - PNEUMONITIS [None]
